FAERS Safety Report 7939615-2 (Version None)
Quarter: 2011Q4

REPORT INFORMATION
  Report Type: 
  Country: None (occurrence: None)
  Receive Date: 20111125
  Receipt Date: 20111114
  Transmission Date: 20120403
  Serious: Yes (Other)
  Sender: FDA-Public Use
  Company Number: US-AMGEN-KDL264778

PATIENT
  Age: 30 Year
  Sex: Female

DRUGS (14)
  1. ENBREL [Suspect]
     Indication: RHEUMATOID ARTHRITIS
     Dosage: 25 MG, 2 TIMES/WK
     Route: 058
     Dates: start: 20071001
  2. ENBREL [Suspect]
     Dosage: 25 MG, 2 TIMES/WK
     Route: 058
     Dates: start: 20060101, end: 20060901
  3. ENBREL [Suspect]
     Dosage: 50 MG, QWK
     Dates: start: 20050701, end: 20050801
  4. ENBREL [Suspect]
     Dosage: 25 MG, 2 TIMES/WK
     Dates: start: 20040101, end: 20041201
  5. PLAQUENIL [Concomitant]
     Dosage: 400 MG, QD
     Dates: start: 20071001, end: 20071001
  6. ADVAIR DISKUS 100/50 [Concomitant]
     Dosage: 50 MG, BID
  7. FLONASE [Concomitant]
     Dosage: UNK
  8. FOLIC ACID [Concomitant]
     Dosage: 4 MG, QD
  9. PRENATAL VITAMINS                  /01549301/ [Concomitant]
     Dosage: UNK
  10. HUMIRA [Concomitant]
     Dosage: UNK
     Dates: start: 20050801, end: 20050901
  11. LOVENOX [Concomitant]
     Dosage: UNK UNK, BID
     Route: 058
  12. CLARITIN                           /00413701/ [Concomitant]
     Dosage: UNK
  13. PEPCID [Concomitant]
     Dosage: UNK
  14. ADVAIR DISKUS 100/50 [Concomitant]
     Dosage: 250 MG, BID

REACTIONS (5)
  - VOMITING IN PREGNANCY [None]
  - VOMITING [None]
  - NAUSEA [None]
  - RHEUMATOID ARTHRITIS [None]
  - ECLAMPSIA [None]
